FAERS Safety Report 16634518 (Version 1)
Quarter: 2019Q3

REPORT INFORMATION
  Report Type: Spontaneous
  Country: US (occurrence: US)
  Receive Date: 20190726
  Receipt Date: 20190726
  Transmission Date: 20191004
  Serious: No
  Sender: FDA-Public Use
  Company Number: US-JNJFOC-20190727802

PATIENT
  Age: 87 Year
  Sex: Female

DRUGS (1)
  1. CHILDRENS TYLENOL [Suspect]
     Active Substance: ACETAMINOPHEN
     Indication: PRODUCT USED FOR UNKNOWN INDICATION
     Dosage: TRIPLE THE DOSE ON THE BOTTLE, EXACT AMOUNT NOT GIVEN
     Route: 048

REACTIONS (1)
  - Product administered to patient of inappropriate age [Unknown]
